FAERS Safety Report 20814298 (Version 2)
Quarter: 2022Q2

REPORT INFORMATION
  Report Type: Spontaneous
  Country: US (occurrence: None)
  Receive Date: 20220511
  Receipt Date: 20220622
  Transmission Date: 20220721
  Serious: Yes (Other)
  Sender: FDA-Public Use
  Company Number: 2022A174292

PATIENT
  Age: 40 Year
  Sex: Female

DRUGS (1)
  1. EVUSHELD [Suspect]
     Active Substance: CILGAVIMAB\TIXAGEVIMAB
     Indication: COVID-19 prophylaxis
     Route: 030

REACTIONS (10)
  - Fibrin D dimer increased [Unknown]
  - Dizziness [Unknown]
  - Dyspnoea [Unknown]
  - Chest pain [Unknown]
  - Urticaria [Unknown]
  - Flushing [Unknown]
  - Heart rate increased [Unknown]
  - Oesophageal discomfort [Unknown]
  - Feeling hot [Unknown]
  - Burning sensation [Unknown]
